FAERS Safety Report 25524365 (Version 1)
Quarter: 2025Q3

REPORT INFORMATION
  Report Type: Report from Study
  Country: CA (occurrence: CA)
  Receive Date: 20250707
  Receipt Date: 20250707
  Transmission Date: 20251020
  Serious: Yes (Death, Hospitalization, Congenital Anomaly, Other)
  Sender: TEVA
  Company Number: CA-TEVA-VS-3349341

PATIENT
  Age: 29 Year
  Sex: Female

DRUGS (1)
  1. AMBRISENTAN [Suspect]
     Active Substance: AMBRISENTAN
     Indication: Pulmonary arterial hypertension
     Route: 048

REACTIONS (6)
  - Cardiac arrest [Fatal]
  - Drug ineffective [Fatal]
  - Right-to-left cardiac shunt [Fatal]
  - Multiple organ dysfunction syndrome [Fatal]
  - Ovarian cyst ruptured [Fatal]
  - Abdominal compartment syndrome [Fatal]
